FAERS Safety Report 5017165-3 (Version None)
Quarter: 2006Q2

REPORT INFORMATION
  Report Type: 
  Country: None (occurrence: None)
  Receive Date: 20060525
  Receipt Date: 20060504
  Transmission Date: 20061013
  Serious: Yes (Other)
  Sender: FDA-Public Use
  Company Number: US200605001056

PATIENT
  Sex: Female

DRUGS (1)
  1. XIGRIS [Suspect]
     Dosage: INTRAVENOUS
     Route: 042
     Dates: start: 20060401, end: 20060503

REACTIONS (3)
  - FEEDING TUBE COMPLICATION [None]
  - HAEMATEMESIS [None]
  - THROMBOCYTOPENIA [None]
